FAERS Safety Report 12445236 (Version 3)
Quarter: 2017Q1

REPORT INFORMATION
  Report Type: Spontaneous
  Country: FR (occurrence: FR)
  Receive Date: 20160607
  Receipt Date: 20170222
  Transmission Date: 20170428
  Serious: Yes (Hospitalization, Other)
  Sender: FDA-Public Use
  Company Number: FR-ABBVIE-16P-056-1645681-00

PATIENT
  Sex: Female

DRUGS (1)
  1. DEPAKOTE [Suspect]
     Active Substance: DIVALPROEX SODIUM
     Indication: BIPOLAR DISORDER
     Route: 048

REACTIONS (10)
  - Caesarean section [Unknown]
  - Disability [Unknown]
  - Oedema [Unknown]
  - Exposure during pregnancy [Unknown]
  - Premature delivery [Unknown]
  - Hypertension [Unknown]
  - Vomiting [Unknown]
  - Live birth [Unknown]
  - Renal disorder [Unknown]
  - Pre-eclampsia [Unknown]

NARRATIVE: CASE EVENT DATE: 2014
